FAERS Safety Report 25907353 (Version 1)
Quarter: 2025Q4

REPORT INFORMATION
  Report Type: Spontaneous
  Country: US (occurrence: US)
  Receive Date: 20251010
  Receipt Date: 20251010
  Transmission Date: 20260117
  Serious: No
  Sender: BAYER HEALTHCARE PHARMACEUTICALS INC.
  Company Number: US-BAYER-2025A133321

PATIENT
  Sex: Female
  Weight: 72.971 kg

DRUGS (3)
  1. STIVARGA [Suspect]
     Active Substance: REGORAFENIB MONOHYDRATE
     Indication: Product used for unknown indication
     Dosage: 120 MG, QD
     Dates: start: 202506, end: 2025
  2. STIVARGA [Suspect]
     Active Substance: REGORAFENIB MONOHYDRATE
     Indication: Product used for unknown indication
     Dosage: 80 MG, QD
     Dates: start: 2025
  3. LONSURF [Suspect]
     Active Substance: TIPIRACIL HYDROCHLORIDE\TRIFLURIDINE
     Indication: Colon cancer
     Dosage: 60 MG, BID  1-5 AND 8-12 IN A 28-DAY CYCLE
     Route: 048
     Dates: start: 202412

REACTIONS (7)
  - Erythema [Recovering/Resolving]
  - Abdominal pain [Recovered/Resolved]
  - Dry skin [Recovering/Resolving]
  - Pain in extremity [Recovering/Resolving]
  - Hypertension [Recovering/Resolving]
  - Intentional underdose [Unknown]
  - Product use issue [None]

NARRATIVE: CASE EVENT DATE: 20250101
